FAERS Safety Report 9227661 (Version 1)
Quarter: 2013Q2

REPORT INFORMATION
  Report Type: Spontaneous
  Country: US (occurrence: None)
  Receive Date: 20130412
  Receipt Date: 20130412
  Transmission Date: 20140414
  Serious: Yes (Life-Threatening)
  Sender: FDA-Public Use
  Company Number: None

PATIENT
  Age: 64 Year
  Sex: 0
  Weight: 178.2 kg

DRUGS (7)
  1. WARFARIN 3MG CADILA HEALTHCARE [Suspect]
     Indication: CARDIAC VALVE DISEASE
     Dosage: 0.5MG  SUNDAY, WEDNESDAY  PO
     Route: 048
  2. WARFARIN 3MG CADILA HEALTHCARE [Suspect]
     Indication: ATRIAL FIBRILLATION
     Dosage: 0.5MG  SUNDAY, WEDNESDAY  PO
     Route: 048
  3. AMIODARONE [Concomitant]
  4. FUROSEMIDE [Concomitant]
  5. NAPROXEN SODIUM [Concomitant]
  6. KLOR-CON [Concomitant]
  7. PREVASTATIN [Concomitant]

REACTIONS (2)
  - Respiratory disorder [None]
  - International normalised ratio increased [None]
